FAERS Safety Report 6312295-8 (Version None)
Quarter: 2009Q3

REPORT INFORMATION
  Report Type: 
  Country: None (occurrence: None)
  Receive Date: 20090817
  Receipt Date: 20090803
  Transmission Date: 20100115
  Serious: Yes (Other)
  Sender: FDA-Public Use
  Company Number: GB-MYLANLABS-2009S1013750

PATIENT
  Sex: Female
  Weight: 50 kg

DRUGS (2)
  1. CITALOPRAM HYDROBROMIDE [Suspect]
     Indication: ANXIETY
     Route: 048
     Dates: start: 20090601, end: 20090709
  2. ERYTHROMYCIN [Suspect]
     Indication: ACNE
     Route: 048
     Dates: start: 20090601, end: 20090709

REACTIONS (1)
  - SEROTONIN SYNDROME [None]
